FAERS Safety Report 4672811-9 (Version None)
Quarter: 2005Q2

REPORT INFORMATION
  Report Type: 
  Country: None (occurrence: None)
  Receive Date: 20050523
  Receipt Date: 20050510
  Transmission Date: 20051028
  Serious: Yes (Death, Hospitalization)
  Sender: FDA-Public Use
  Company Number: 2005073211

PATIENT
  Age: 83 Year
  Sex: Female

DRUGS (17)
  1. ZOLOFT [Suspect]
     Indication: ILL-DEFINED DISORDER
     Dosage: 50 MG (50 MG, 1 IN 1 D), ORAL
     Route: 048
     Dates: start: 20050331, end: 20050402
  2. ZOPICLONE (ZOPICLONE) [Suspect]
     Indication: ILL-DEFINED DISORDER
     Dates: start: 20050402
  3. COUMADIN [Suspect]
     Indication: ILL-DEFINED DISORDER
     Dosage: 1D, ORAL
     Route: 048
  4. SINTROM [Suspect]
     Indication: ILL-DEFINED DISORDER
     Dosage: 1D, ORAL
     Route: 048
     Dates: start: 20050401, end: 20050401
  5. DIGOXIN [Suspect]
     Indication: ILL-DEFINED DISORDER
     Dates: end: 20050402
  6. PHYTONADIONE [Suspect]
     Indication: ILL-DEFINED DISORDER
     Dates: start: 20050404
  7. ALL OTHER THERAPEUTIC PRODUCTS (ALL OTHER THERAPEUTIC PRODUCTS) [Concomitant]
  8. ACETAMINOPHEN AND TRAMADOL HCL [Concomitant]
  9. METHOTREXATE [Concomitant]
  10. DIGOXIN [Concomitant]
  11. LORAZEPAM [Concomitant]
  12. OMEPRAZOLE [Concomitant]
  13. FOSAMAX [Concomitant]
  14. ENDOTELON (HERBAL EXTRACTS NOS, VITIS VINIFERA) [Concomitant]
  15. MEPRONIZINE (ACEPROMETAZINE, MEPROBAMATE) [Concomitant]
  16. CALCIUM CARBONATE/COLECALCIFEROL (CALCIUM CARBONATE, COLECALCIFEROL) [Concomitant]
  17. MAPROTILINE [Concomitant]

REACTIONS (8)
  - BACK PAIN [None]
  - CEREBROVASCULAR ACCIDENT [None]
  - COMA [None]
  - DRUG INTERACTION [None]
  - GENERAL PHYSICAL HEALTH DETERIORATION [None]
  - GRAND MAL CONVULSION [None]
  - INTERNATIONAL NORMALISED RATIO INCREASED [None]
  - PROTHROMBIN TIME RATIO INCREASED [None]
